FAERS Safety Report 5992989 (Version 2)
Quarter: 2013Q3

REPORT INFORMATION
  Report Type: Spontaneous
  Country: US (occurrence: None)
  Receive Date: 20060210
  Receipt Date: 20130808
  Transmission Date: 20140515
  Serious: Yes (Death)
  Sender: FDA-Public Use
  Company Number: 2006US-01553

PATIENT
  Age: 26 Year
  Sex: Male

DRUGS (5)
  1. EQUATE LOPERAMIDE HYDROCHLORIDE [Suspect]
     Indication: DIARRHOEA
  2. ALCOHOL [Suspect]
     Indication: PRODUCT USED FOR UNKNOWN INDICATION
  3. LITHIUM CARBONATE (LITHIUM CARBONATE) UNKNOWN [Concomitant]
  4. TRAZODONE (TRAZODONE) UNKNOWN [Concomitant]
  5. ARIPIPRAZOLE (ARIPIPRAZOLE) UNKNOWN [Concomitant]

REACTIONS (9)
  - Overdose [None]
  - Loss of consciousness [None]
  - Hypertensive heart disease [None]
  - Hepatitis [None]
  - Oesophagitis [None]
  - Granuloma [None]
  - Spleen disorder [None]
  - Alcohol poisoning [None]
  - Inflammation [None]
